FAERS Safety Report 8333008-4 (Version None)
Quarter: 2012Q1

REPORT INFORMATION
  Report Type: 
  Country: None (occurrence: None)
  Receive Date: 20120327
  Receipt Date: 20110314
  Transmission Date: 20120608
  Serious: Yes (Other)
  Sender: FDA-Public Use
  Company Number: PHHY2011US11324

PATIENT
  Age: 77 Year
  Sex: Male
  Weight: 74.5 kg

DRUGS (6)
  1. GLEEVEC [Suspect]
     Indication: CHRONIC MYELOID LEUKAEMIA
     Dosage: 400 MG, DAILY, ORAL ; 400 MG DAILY, ORAL
     Route: 048
     Dates: start: 19960101
  2. GLEEVEC [Suspect]
     Indication: CHRONIC MYELOID LEUKAEMIA
     Dosage: 400 MG, DAILY, ORAL ; 400 MG DAILY, ORAL
     Route: 048
     Dates: start: 20080228
  3. ATENOLOL [Concomitant]
  4. ALBUMIN BOVINE (ALBUMIN BOVINE) [Concomitant]
  5. LASIX [Concomitant]
  6. DIGOXIN [Concomitant]

REACTIONS (10)
  - FACE OEDEMA [None]
  - DYSPNOEA [None]
  - VOMITING [None]
  - DIARRHOEA [None]
  - FATIGUE [None]
  - NAUSEA [None]
  - WEIGHT INCREASED [None]
  - CARDIAC FAILURE CONGESTIVE [None]
  - SWELLING [None]
  - ASTHENIA [None]
